FAERS Safety Report 9369330 (Version 2)
Quarter: 2014Q2

REPORT INFORMATION
  Report Type: Spontaneous
  Country: US (occurrence: US)
  Receive Date: 20130626
  Receipt Date: 20140620
  Transmission Date: 20141212
  Serious: Yes (Hospitalization)
  Sender: FDA-Public Use
  Company Number: US-BAYER-2013-078134

PATIENT
  Age: 36 Year
  Sex: Female
  Weight: 67.57 kg

DRUGS (8)
  1. GIANVI [Suspect]
     Indication: ACNE
     Dosage: UNK
     Dates: start: 20111227
  2. YAZ [Suspect]
     Indication: ACNE
     Dosage: UNK
     Dates: start: 2005, end: 2007
  3. YAZ [Suspect]
     Indication: ACNE
     Dosage: UNK
     Dates: start: 20090426, end: 20100324
  4. BEYAZ [Suspect]
     Indication: ACNE
     Dosage: UNK
     Dates: start: 201111, end: 20111227
  5. CEPHALEXIN [Concomitant]
     Indication: ANTIBIOTIC THERAPY
     Dosage: 250 MG, UNK
     Route: 048
     Dates: start: 20120517, end: 20120524
  6. PROMETHAZINE [Concomitant]
     Indication: PROPHYLAXIS OF NAUSEA AND VOMITING
     Dosage: 25 MG, UNK
     Dates: start: 20120517, end: 20120524
  7. TEMAZEPAM [Concomitant]
     Indication: INSOMNIA
     Dosage: 30 MG, UNK
     Route: 048
     Dates: start: 20120517, end: 20120524
  8. OXYCODONE [Concomitant]
     Indication: PAIN
     Dosage: 5 AND 325 MG
     Route: 048
     Dates: start: 20120517, end: 20120531

REACTIONS (14)
  - Pulmonary embolism [None]
  - Emotional distress [None]
  - Injury [None]
  - Pain [None]
  - General physical health deterioration [None]
  - Anxiety [None]
  - Pain [None]
  - Musculoskeletal discomfort [None]
  - Chest pain [None]
  - Dyspnoea [None]
  - Hypopnoea [None]
  - Chest discomfort [None]
  - Fear [None]
  - Muscle spasms [None]
